FAERS Safety Report 12842487 (Version 4)
Quarter: 2020Q1

REPORT INFORMATION
  Report Type: Spontaneous
  Country: FR (occurrence: FR)
  Receive Date: 20161013
  Receipt Date: 20200305
  Transmission Date: 20200409
  Serious: Yes (Other)
  Sender: FDA-Public Use
  Company Number: FR-SUN PHARMACEUTICAL INDUSTRIES LTD-2016RR-125805

PATIENT
  Sex: Male
  Weight: 3 kg

DRUGS (1)
  1. PARACETAMOL [Suspect]
     Active Substance: ACETAMINOPHEN
     Indication: GASTROENTERITIS
     Dosage: UNK
     Route: 065

REACTIONS (1)
  - Haemolytic anaemia [Recovering/Resolving]
